FAERS Safety Report 13795253 (Version 2)
Quarter: 2017Q4

REPORT INFORMATION
  Report Type: Spontaneous
  Country: RU (occurrence: RU)
  Receive Date: 20170726
  Receipt Date: 20171214
  Transmission Date: 20180320
  Serious: Yes (Hospitalization, Other)
  Sender: FDA-Public Use
  Company Number: RU-ASTRAZENECA-2017SE74536

PATIENT
  Age: 75 Year
  Sex: Male
  Weight: 109 kg

DRUGS (10)
  1. ATORVASTATIN [Concomitant]
     Active Substance: ATORVASTATIN
  2. CARDIOMAGNYL [Concomitant]
     Active Substance: ASPIRIN\MAGNESIUM HYDROXIDE
  3. VEROSPIRON [Concomitant]
     Active Substance: SPIRONOLACTONE
  4. BRILINTA [Suspect]
     Active Substance: TICAGRELOR
     Indication: MYOCARDIAL INFARCTION
     Route: 048
     Dates: start: 201512, end: 201711
  5. DIUVER [Concomitant]
     Active Substance: TORSEMIDE
  6. MONOCINQUE [Concomitant]
     Active Substance: ISOSORBIDE MONONITRATE
  7. BETALOC ZOK [Concomitant]
     Active Substance: METOPROLOL SUCCINATE
  8. NOLPAZA [Concomitant]
     Active Substance: PANTOPRAZOLE SODIUM
  9. PRESTARIUM [Concomitant]
     Active Substance: PERINDOPRIL
  10. CORDARONE [Concomitant]
     Active Substance: AMIODARONE HYDROCHLORIDE

REACTIONS (5)
  - Haemorrhage subcutaneous [Recovered/Resolved]
  - Off label use [Unknown]
  - Arrhythmia [Recovered/Resolved]
  - Product use issue [Unknown]
  - Eye haemorrhage [Recovered/Resolved]

NARRATIVE: CASE EVENT DATE: 201603
